FAERS Safety Report 24761104 (Version 1)
Quarter: 2024Q4

REPORT INFORMATION
  Report Type: Spontaneous
  Country: US (occurrence: US)
  Receive Date: 20241220
  Receipt Date: 20241220
  Transmission Date: 20250114
  Serious: Yes (Other)
  Sender: BRISTOL-MYERS SQUIBB COMPANY
  Company Number: US-BRISTOL-MYERS SQUIBB COMPANY-2024-192801

PATIENT
  Age: 63 Year
  Sex: Female

DRUGS (2)
  1. LENALIDOMIDE [Suspect]
     Active Substance: LENALIDOMIDE
     Indication: Plasma cell myeloma
     Dosage: TAKE 1 CAPSULE BY MOUTH WITH A FULL GLASS OF WATER DAILY ON DAYS 1-21 OF A 28 DAY CYCLE
     Route: 048
  2. DARZALEX [Concomitant]
     Active Substance: DARATUMUMAB
     Indication: Product used for unknown indication
     Dates: start: 202411

REACTIONS (7)
  - Fatigue [Unknown]
  - Constipation [Unknown]
  - Spinal disorder [Unknown]
  - Headache [Unknown]
  - Pruritus [Unknown]
  - Hot flush [Unknown]
  - Drug ineffective [Unknown]
